FAERS Safety Report 16008687 (Version 1)
Quarter: 2019Q1

REPORT INFORMATION
  Report Type: Spontaneous
  Country: JP (occurrence: JP)
  Receive Date: 20190226
  Receipt Date: 20190226
  Transmission Date: 20190418
  Serious: Yes (Other)
  Sender: FDA-Public Use
  Company Number: JP-009507513-1901JPN000239J

PATIENT
  Age: 10 Decade
  Sex: Female

DRUGS (1)
  1. CUBICIN [Suspect]
     Active Substance: DAPTOMYCIN
     Indication: BACTERAEMIA
     Dosage: 8 MILLIGRAM/KILOGRAM, QD
     Route: 041
     Dates: start: 201812

REACTIONS (3)
  - Staphylococcus test positive [Unknown]
  - Pneumonia [Unknown]
  - Prescribed overdose [Unknown]

NARRATIVE: CASE EVENT DATE: 201812
